FAERS Safety Report 6287292-1 (Version None)
Quarter: 2009Q3

REPORT INFORMATION
  Report Type: 
  Country: None (occurrence: None)
  Receive Date: 20090728
  Receipt Date: 20090723
  Transmission Date: 20100115
  Serious: Yes (Death)
  Sender: FDA-Public Use
  Company Number: PHHY2009TW30350

PATIENT
  Sex: Male
  Weight: 57 kg

DRUGS (6)
  1. ZOLEDRONATE T29581++BM [Suspect]
     Indication: PROSTATE CANCER METASTATIC
     Dosage: 3.3 MG PER MONTH
     Route: 042
     Dates: start: 20090107
  2. ZOLEDRONATE T29581++BM [Suspect]
     Indication: METASTASES TO BONE
  3. LASIX [Concomitant]
     Indication: CARDIAC FAILURE CONGESTIVE
     Dosage: 40 MG, UNK
     Dates: start: 20040303
  4. COZAAR [Concomitant]
     Indication: HYPERTENSION
     Dosage: 50 MG/CAP
     Dates: start: 20040303
  5. MEXITIL [Concomitant]
     Indication: SINUS TACHYCARDIA
     Dosage: 100 MG/CAP
     Dates: start: 20040323
  6. DIPHERELINE [Concomitant]
     Indication: PROSTATE CANCER
     Dosage: 3.75 MG/MONTH
     Dates: start: 20060419

REACTIONS (4)
  - ACUTE MYOCARDIAL INFARCTION [None]
  - CHEST PAIN [None]
  - SHOCK [None]
  - SYNCOPE [None]
